FAERS Safety Report 23014516 (Version 2)
Quarter: 2023Q4

REPORT INFORMATION
  Report Type: Other
  Country: CA (occurrence: None)
  Receive Date: 20231002
  Receipt Date: 20231102
  Transmission Date: 20240110
  Serious: Yes (Other)
  Sender: FDA-Public Use
  Company Number: CA-ROCHE-3425244

PATIENT
  Sex: Female

DRUGS (1)
  1. OCREVUS [Suspect]
     Active Substance: OCRELIZUMAB
     Indication: Relapsing-remitting multiple sclerosis
     Dosage: THEN 600 MG EVERY 6 MONTH
     Route: 042
     Dates: start: 20190806

REACTIONS (6)
  - Skin cancer [Recovered/Resolved]
  - Nasopharyngitis [Not Recovered/Not Resolved]
  - COVID-19 [Recovered/Resolved]
  - Asthenia [Unknown]
  - Nausea [Not Recovered/Not Resolved]
  - Fatigue [Unknown]
